FAERS Safety Report 15248246 (Version 2)
Quarter: 2018Q4

REPORT INFORMATION
  Report Type: Spontaneous
  Country: US (occurrence: US)
  Receive Date: 20180807
  Receipt Date: 20181010
  Transmission Date: 20190204
  Serious: Yes (Other)
  Sender: FDA-Public Use
  Company Number: US-ELI_LILLY_AND_COMPANY-US201807012683

PATIENT
  Sex: Female
  Weight: 72.56 kg

DRUGS (4)
  1. LISINOPRIL. [Concomitant]
     Active Substance: LISINOPRIL
  2. ALIMTA [Suspect]
     Active Substance: PEMETREXED DISODIUM
     Indication: MALIGNANT PERITONEAL NEOPLASM
     Dosage: UNK, UNKNOWN
     Route: 042
     Dates: start: 201712
  3. ALIMTA [Suspect]
     Active Substance: PEMETREXED DISODIUM
     Indication: PERITONEAL MESOTHELIOMA MALIGNANT
  4. CISPLATIN. [Concomitant]
     Active Substance: CISPLATIN
     Indication: MALIGNANT PERITONEAL NEOPLASM
     Dosage: UNK, UNKNOWN
     Route: 065

REACTIONS (2)
  - Chronic kidney disease [Unknown]
  - Off label use [Unknown]
